FAERS Safety Report 21129504 (Version 2)
Quarter: 2022Q4

REPORT INFORMATION
  Report Type: Spontaneous
  Country: AT (occurrence: AT)
  Receive Date: 20220726
  Receipt Date: 20221003
  Transmission Date: 20230113
  Serious: Yes (Death, Other)
  Sender: FDA-Public Use
  Company Number: AT-BRISTOL-MYERS SQUIBB COMPANY-2022-079622

PATIENT
  Age: 47 Year
  Sex: Male
  Weight: 67 kg

DRUGS (12)
  1. OPDIVO [Suspect]
     Active Substance: NIVOLUMAB
     Indication: Metastatic malignant melanoma
     Dosage: 3 CYCLES IN DEC-2020 OPDIVO MONO ADMINISTERED 4 CYCLES TILL DEC-2021
     Route: 042
     Dates: start: 202012, end: 202112
  2. OPDIVO [Suspect]
     Active Substance: NIVOLUMAB
     Dosage: DEC-2020 -} 3 CYCLES, 4 CYCLES UNTIL DEC-2021, APR-2022 AND MAY-2022 -}2 CYCLES
     Route: 042
     Dates: start: 202204, end: 202205
  3. YERVOY [Suspect]
     Active Substance: IPILIMUMAB
     Indication: Metastatic malignant melanoma
     Dosage: DEC-2020 3 CYCLES(IN COMBINATION WITH OPDIVO)
     Route: 042
     Dates: start: 202012
  4. AMITRIPTYLINE [Concomitant]
     Active Substance: AMITRIPTYLINE
  5. LEVETIRACETAM [Concomitant]
     Active Substance: LEVETIRACETAM
  6. LISAM [Concomitant]
  7. EDOXABAN TOSYLATE [Concomitant]
     Active Substance: EDOXABAN TOSYLATE
  8. ACETAMINOPHEN [Concomitant]
     Active Substance: ACETAMINOPHEN
  9. METHYLPREDNISOLONE [Concomitant]
     Active Substance: METHYLPREDNISOLONE
  10. TRAMASTAD [Concomitant]
  11. NOVALGIN (METAMIZOLE SODIUM) [Concomitant]
     Active Substance: METAMIZOLE SODIUM
  12. METOPROLOL [Concomitant]
     Active Substance: METOPROLOL

REACTIONS (4)
  - Off label use [Unknown]
  - Cerebral haemorrhage [Fatal]
  - Cerebral infarction [Fatal]
  - Polyarteritis nodosa [Unknown]

NARRATIVE: CASE EVENT DATE: 20220707
